FAERS Safety Report 20017942 (Version 1)
Quarter: 2021Q4

REPORT INFORMATION
  Report Type: Spontaneous
  Country: IN (occurrence: IN)
  Receive Date: 20211101
  Receipt Date: 20211101
  Transmission Date: 20220303
  Serious: Yes (Other)
  Sender: FDA-Public Use
  Company Number: IN-ENDO PHARMACEUTICALS INC-2021-012457

PATIENT
  Age: 26 Year
  Sex: Female

DRUGS (2)
  1. ACETAZOLAMIDE SODIUM [Suspect]
     Active Substance: ACETAZOLAMIDE SODIUM
     Indication: Idiopathic intracranial hypertension
     Dosage: UNK UNKNOWN, UNKNOWN
     Route: 065
  2. ACETAZOLAMIDE SODIUM [Suspect]
     Active Substance: ACETAZOLAMIDE SODIUM
     Indication: Intraocular pressure increased
     Dosage: UNK, UNKNOWN (INCREASED DOSE)
     Route: 065

REACTIONS (3)
  - Angle closure glaucoma [Recovered/Resolved]
  - Acute myopia [Recovered/Resolved]
  - Off label use [Recovered/Resolved]
